FAERS Safety Report 11480875 (Version 1)
Quarter: 2015Q3

REPORT INFORMATION
  Report Type: Spontaneous
  Country: US (occurrence: US)
  Receive Date: 20150909
  Receipt Date: 20150909
  Transmission Date: 20151125
  Serious: No
  Sender: FDA-Public Use
  Company Number: US-JAZZ-2014-US-015101

PATIENT
  Age: 68 Year
  Sex: Female

DRUGS (5)
  1. XYREM [Suspect]
     Active Substance: SODIUM OXYBATE
     Dosage: DOSE ADJUSTMENTS
     Route: 048
  2. XYREM [Suspect]
     Active Substance: SODIUM OXYBATE
     Dosage: 6 G, BID
     Route: 048
  3. XYREM [Suspect]
     Active Substance: SODIUM OXYBATE
     Dosage: 5 G, QD
     Route: 048
     Dates: start: 20141113, end: 2014
  4. XYREM [Suspect]
     Active Substance: SODIUM OXYBATE
     Dosage: 5 G, BID
     Route: 048
  5. XYREM [Suspect]
     Active Substance: SODIUM OXYBATE
     Indication: SLEEP DISORDER
     Dosage: 2.25 G, BID
     Route: 048
     Dates: start: 200801, end: 200802

REACTIONS (7)
  - Confusional state [Recovering/Resolving]
  - Somnambulism [Recovering/Resolving]
  - Drug dose omission [Unknown]
  - Prescribed overdose [Unknown]
  - Product use issue [Unknown]
  - Pneumonia [Unknown]
  - Sleep talking [Recovering/Resolving]

NARRATIVE: CASE EVENT DATE: 2014
